FAERS Safety Report 4618930-4 (Version None)
Quarter: 2005Q2

REPORT INFORMATION
  Report Type: 
  Country: None (occurrence: None)
  Receive Date: 20050302
  Receipt Date: 20040712
  Transmission Date: 20051028
  Serious: Yes (Other)
  Sender: FDA-Public Use
  Company Number: 1199711292

PATIENT
  Age: 39 Year
  Sex: Female

DRUGS (1)
  1. TRASYLOL [Suspect]
     Indication: AORTIC VALVE REPAIR
     Dosage: 1 ML, TOTAL DAILY, INTRAVENOUS
     Route: 042
     Dates: start: 19970325

REACTIONS (2)
  - ANAPHYLACTIC REACTION [None]
  - HYPOTENSION [None]
